FAERS Safety Report 14853977 (Version 1)
Quarter: 2018Q2

REPORT INFORMATION
  Report Type: Spontaneous
  Country: US (occurrence: US)
  Receive Date: 20180507
  Receipt Date: 20180507
  Transmission Date: 20180711
  Serious: Yes (Hospitalization, Other)
  Sender: FDA-Public Use
  Company Number: US-PFIZER INC-2018147626

PATIENT
  Age: 59 Year
  Sex: Male

DRUGS (2)
  1. ZOSYN [Concomitant]
     Active Substance: PIPERACILLIN SODIUM\TAZOBACTAM SODIUM
     Dosage: UNK
  2. DAPTOMYCIN. [Suspect]
     Active Substance: DAPTOMYCIN
     Indication: LOCALISED INFECTION
     Dosage: UNK

REACTIONS (6)
  - Pneumonia [Unknown]
  - Oxygen saturation decreased [Unknown]
  - Gait inability [Unknown]
  - Dyspnoea [Unknown]
  - Asthenia [Unknown]
  - Toxicity to various agents [Unknown]
